FAERS Safety Report 24250761 (Version 1)
Quarter: 2024Q3

REPORT INFORMATION
  Report Type: Spontaneous
  Country: US (occurrence: US)
  Receive Date: 20240826
  Receipt Date: 20240826
  Transmission Date: 20241017
  Serious: No
  Sender: MEDEXUS PHARMA
  Company Number: US-MEDEXUS PHARMA, INC.-2023MED00381

PATIENT
  Sex: Female

DRUGS (2)
  1. RASUVO [Suspect]
     Active Substance: METHOTREXATE SODIUM
     Dosage: 12.5 MG
  2. RASUVO [Suspect]
     Active Substance: METHOTREXATE SODIUM
     Dosage: 10 MG

REACTIONS (1)
  - Hepatic enzyme decreased [Unknown]
